FAERS Safety Report 11893271 (Version 1)
Quarter: 2016Q1

REPORT INFORMATION
  Report Type: Spontaneous
  Country: US (occurrence: US)
  Receive Date: 20160106
  Receipt Date: 20160106
  Transmission Date: 20160526
  Serious: Yes (Other)
  Sender: FDA-Public Use
  Company Number: US-MYLANLABS-2016M1000022

PATIENT

DRUGS (1)
  1. MELPHALAN [Suspect]
     Active Substance: MELPHALAN
     Indication: RETINOBLASTOMA
     Dosage: 5MG (3 DOSES; APPROXIMATELY 1 MONTH APART)
     Route: 013

REACTIONS (3)
  - Retinal detachment [Unknown]
  - Treatment failure [Unknown]
  - Retinal haemorrhage [Unknown]
